FAERS Safety Report 23938349 (Version 1)
Quarter: 2024Q2

REPORT INFORMATION
  Report Type: Spontaneous
  Country: US (occurrence: US)
  Receive Date: 20240604
  Receipt Date: 20240604
  Transmission Date: 20240715
  Serious: Yes (Life-Threatening, Hospitalization)
  Sender: FDA-Public Use
  Company Number: US-CMP PHARMA-2024CMP00025

PATIENT
  Age: 39 Year
  Sex: Male

DRUGS (2)
  1. AMLODIPINE [Suspect]
     Active Substance: AMLODIPINE BESYLATE
     Indication: Hypertension
     Dosage: UNK
     Route: 048
  2. AMLODIPINE [Suspect]
     Active Substance: AMLODIPINE BESYLATE
     Indication: Suicide attempt
     Dosage: 80 TABLETS
     Route: 048

REACTIONS (7)
  - Capillary leak syndrome [Recovered/Resolved]
  - Suicide attempt [Recovered/Resolved]
  - Distributive shock [Recovered/Resolved]
  - Lactic acidosis [Recovered/Resolved]
  - Acute kidney injury [Recovered/Resolved]
  - Acute respiratory distress syndrome [Recovered/Resolved]
  - Overdose [Recovered/Resolved]
